FAERS Safety Report 8458444-7 (Version None)
Quarter: 2012Q2

REPORT INFORMATION
  Report Type: 
  Country: None (occurrence: None)
  Receive Date: 20120622
  Receipt Date: 20120611
  Transmission Date: 20120825
  Serious: Yes (Hospitalization)
  Sender: FDA-Public Use
  Company Number: FR-BRISTOL-MYERS SQUIBB COMPANY-16688947

PATIENT
  Age: 89 Year
  Sex: Female

DRUGS (3)
  1. ACETAMINOPHEN [Concomitant]
  2. ACETAMINOPHEN AND TRAMADOL HCL [Concomitant]
  3. CAPTOPRIL AND HYDROCHLOROTHIAZIDE [Suspect]
     Indication: HYPERTENSION
     Route: 048
     Dates: end: 20120409

REACTIONS (3)
  - RHABDOMYOLYSIS [None]
  - HYPONATRAEMIA [None]
  - FALL [None]
